FAERS Safety Report 10719647 (Version 2)
Quarter: 2015Q1

REPORT INFORMATION
  Report Type: Spontaneous
  Country: US (occurrence: US)
  Receive Date: 20150119
  Receipt Date: 20150119
  Transmission Date: 20150721
  Serious: Yes (Hospitalization)
  Sender: FDA-Public Use
  Company Number: US-UNITED THERAPEUTICS-UTC-048205

PATIENT
  Sex: Female
  Weight: 108.8 kg

DRUGS (4)
  1. WARFARIN [Concomitant]
     Active Substance: WARFARIN
  2. TRACLEER [Concomitant]
     Active Substance: BOSENTAN\BOSENTAN MONOHYDRATE
  3. REMODULIN [Suspect]
     Active Substance: TREPROSTINIL
     Dosage: 0.077 ?G/KG, CONTINUING
     Route: 042
     Dates: start: 20110902
  4. REMODULIN [Suspect]
     Active Substance: TREPROSTINIL
     Dosage: 0.077 ?G/KG, CONTINUING
     Route: 042
     Dates: start: 20110902

REACTIONS (2)
  - Device occlusion [Unknown]
  - Drug dose omission [Unknown]
